FAERS Safety Report 6058085-5 (Version None)
Quarter: 2009Q1

REPORT INFORMATION
  Report Type: 
  Country: None (occurrence: None)
  Receive Date: 20090128
  Receipt Date: 20090116
  Transmission Date: 20090719
  Serious: Yes (Other)
  Sender: FDA-Public Use
  Company Number: 2008-04873

PATIENT
  Age: 72 Year
  Sex: Male
  Weight: 95.5 kg

DRUGS (8)
  1. VELCADE [Suspect]
     Indication: ACUTE MYELOID LEUKAEMIA
     Dosage: 0.7 MG/M2, IV BOLUS
     Route: 040
     Dates: start: 20080829, end: 20081104
  2. AZACITIDINE          (AZACITIDINE) INFUSION [Suspect]
     Indication: ACUTE MYELOID LEUKAEMIA
     Dosage: 75 MG/M2, INTRAVENOUS
     Route: 042
     Dates: start: 20080829, end: 20080101
  3. HUMULIN 70/30 [Concomitant]
  4. COLACE (DOCUSATE SODIUM) [Concomitant]
  5. NEXIUM [Concomitant]
  6. ZOCOR [Concomitant]
  7. DIFLUCAN [Concomitant]
  8. ZOFRAN [Concomitant]

REACTIONS (1)
  - DERMATITIS [None]
